FAERS Safety Report 6678787-7 (Version None)
Quarter: 2010Q2

REPORT INFORMATION
  Report Type: 
  Country: None (occurrence: None)
  Receive Date: 20100408
  Receipt Date: 20100324
  Transmission Date: 20101027
  Serious: Yes (Death, Other)
  Sender: FDA-Public Use
  Company Number: 2010001050

PATIENT
  Sex: Female
  Weight: 56 kg

DRUGS (8)
  1. ERLOTINIB HYDROCHLORIDE [Suspect]
     Indication: LUNG ADENOCARCINOMA
     Dosage: (150 MG, QD), ORAL
     Route: 048
     Dates: start: 20090702, end: 20090711
  2. ALDACTONE [Concomitant]
  3. LOXOPROFEN (LOXOPROFEN) [Concomitant]
  4. MUCOSTA (REBAMIPIDE) [Concomitant]
  5. WARFARIN SODIUM [Concomitant]
  6. LIPIDIL [Concomitant]
  7. MEDICON (DEXTROMETHORPHAN HYDROBROMIDE) [Concomitant]
  8. DOGMATYL (SULPIRIDE) [Concomitant]

REACTIONS (4)
  - DEEP VEIN THROMBOSIS [None]
  - DRUG INTERACTION [None]
  - INTERNATIONAL NORMALISED RATIO INCREASED [None]
  - PULMONARY EMBOLISM [None]
